FAERS Safety Report 14846967 (Version 2)
Quarter: 2020Q3

REPORT INFORMATION
  Report Type: Spontaneous
  Country: DE (occurrence: DE)
  Receive Date: 20180504
  Receipt Date: 20180529
  Transmission Date: 20201105
  Serious: Yes (Death)
  Sender: FDA-Public Use
  Company Number: DE-BAXTER-2018BAX013040

PATIENT
  Age: 71 Year
  Sex: Female

DRUGS (65)
  1. ZYRTEC [Concomitant]
     Active Substance: CETIRIZINE HYDROCHLORIDE
     Indication: PRODUCT USED FOR UNKNOWN INDICATION
     Dosage: 2 DF, QD
     Route: 065
     Dates: start: 20041110, end: 20041110
  2. FUROSEMIDE. [Suspect]
     Active Substance: FUROSEMIDE
     Dosage: 10 MG, QD
     Route: 048
     Dates: start: 20041101, end: 20041101
  3. METHIMAZOLE. [Suspect]
     Active Substance: METHIMAZOLE
     Indication: HYPERTHYROIDISM
     Dosage: 50 MG, UNK
     Route: 048
     Dates: start: 20041006, end: 20041105
  4. TAVANIC [Concomitant]
     Active Substance: LEVOFLOXACIN
     Indication: PRODUCT USED FOR UNKNOWN INDICATION
     Dosage: 500 MG, QD
     Route: 065
     Dates: start: 20041107, end: 20041110
  5. PROMETHAZINE HYDROCHLORIDE. [Concomitant]
     Active Substance: PROMETHAZINE HYDROCHLORIDE
     Indication: PRODUCT USED FOR UNKNOWN INDICATION
     Dosage: 5 DF, BID
     Route: 065
     Dates: start: 20041105, end: 20041108
  6. UNACID (AMPICILLIN SODIUM\SULBACTAM SODIUM) [Concomitant]
     Active Substance: AMPICILLIN SODIUM\SULBACTAM SODIUM
     Indication: PRODUCT USED FOR UNKNOWN INDICATION
     Dosage: 1 G, TID
     Route: 065
     Dates: start: 20041106, end: 20041106
  7. GLUCOSE 50  BAXTER [Suspect]
     Active Substance: DEXTROSE
     Indication: HYPOGLYCAEMIA
     Dosage: UNK
     Route: 042
     Dates: start: 20041102, end: 20041102
  8. CARBAMAZEPINE. [Suspect]
     Active Substance: CARBAMAZEPINE
     Indication: AGITATION
     Dosage: 5 DF, BID
     Route: 048
     Dates: start: 20041101, end: 20041102
  9. CLARITHROMYCIN. [Suspect]
     Active Substance: CLARITHROMYCIN
     Indication: PNEUMONIA
     Dosage: 250 MG, UNK
     Route: 048
     Dates: start: 20041018, end: 20041024
  10. DERMATOP [Concomitant]
     Active Substance: PREDNICARBATE
     Indication: PRODUCT USED FOR UNKNOWN INDICATION
     Dosage: 2 DF, QD
     Route: 065
     Dates: start: 20041110, end: 20041110
  11. DIGITOXIN [Concomitant]
     Active Substance: DIGITOXIN
     Indication: PRODUCT USED FOR UNKNOWN INDICATION
     Dosage: 5 DF, QD
     Route: 065
     Dates: start: 20041106, end: 20041108
  12. NATRIUMCHLORID?TR?GERL?SUNG BAXTER [Suspect]
     Active Substance: SODIUM CHLORIDE
     Indication: FLUID REPLACEMENT
     Dosage: 500 ML, QD
     Route: 042
     Dates: start: 20041024, end: 20041027
  13. BROTIZOLAM [Suspect]
     Active Substance: BROTIZOLAM
     Dosage: 1 DF, QD
     Route: 048
     Dates: start: 20041110, end: 20041110
  14. BROTIZOLAM [Suspect]
     Active Substance: BROTIZOLAM
     Dosage: 1 DF, QD
     Route: 048
     Dates: start: 20041015, end: 20041024
  15. HYDROCHLOROTHIAZIDE. [Suspect]
     Active Substance: HYDROCHLOROTHIAZIDE
     Indication: ESSENTIAL HYPERTENSION
     Dosage: 25 MG, QD
     Route: 048
     Dates: start: 20041012, end: 20041031
  16. POTASSIUM CITRATE. [Suspect]
     Active Substance: POTASSIUM CITRATE
     Dosage: 1 DF, QD
     Route: 048
     Dates: start: 20001102, end: 20041104
  17. ALLOPURINOL. [Suspect]
     Active Substance: ALLOPURINOL
     Indication: HYPERURICAEMIA
     Dosage: 1 DF, QD
     Route: 048
     Dates: start: 20041024, end: 20041102
  18. BELOC?ZOK [Suspect]
     Active Substance: METOPROLOL SUCCINATE
     Indication: ACUTE MYOCARDIAL INFARCTION
     Dosage: UNK
     Route: 048
     Dates: start: 20041012, end: 20041031
  19. ELECTROLYTES NOS [Suspect]
     Active Substance: ELECTROLYTES NOS
     Indication: FLUID REPLACEMENT
     Dosage: UNK
     Route: 042
     Dates: start: 20041002, end: 20041111
  20. HALOPERIDOL. [Concomitant]
     Active Substance: HALOPERIDOL
     Indication: PRODUCT USED FOR UNKNOWN INDICATION
     Dosage: 20 GTT, BID
     Route: 065
     Dates: start: 20041104, end: 20041105
  21. NOVALGIN (METAMIZOLE SODIUM) [Concomitant]
     Active Substance: METAMIZOLE SODIUM
     Indication: PRODUCT USED FOR UNKNOWN INDICATION
     Dosage: 20 GTT, QD
     Route: 065
     Dates: start: 20041017, end: 20041017
  22. TAZOBACTAM [Concomitant]
     Active Substance: TAZOBACTAM
     Indication: PRODUCT USED FOR UNKNOWN INDICATION
     Dosage: 4.5 MG, TID
     Route: 065
     Dates: start: 20041007, end: 20041015
  23. POTASSIUM CHLORIDE. [Suspect]
     Active Substance: POTASSIUM CHLORIDE
     Dosage: UNK
     Route: 065
     Dates: start: 20041025, end: 20041027
  24. BROTIZOLAM [Suspect]
     Active Substance: BROTIZOLAM
     Indication: SLEEP DISORDER
     Dosage: 1 DF, QD
     Route: 048
     Dates: start: 20041103, end: 20041103
  25. PIPAMPERONE [Suspect]
     Active Substance: PIPAMPERONE
     Indication: DISORIENTATION
     Dosage: 1 DF, QD
     Route: 048
     Dates: start: 20041103, end: 20041104
  26. ASPIRIN. [Suspect]
     Active Substance: ASPIRIN
     Indication: THROMBOSIS PROPHYLAXIS
     Dosage: 100 MG, QD
     Route: 048
     Dates: start: 20040729, end: 20041107
  27. TOREM [Suspect]
     Active Substance: TORSEMIDE
     Dosage: UNK
     Route: 048
     Dates: start: 20041102, end: 20041105
  28. CLOPIDOGREL [Suspect]
     Active Substance: CLOPIDOGREL BISULFATE
     Indication: THROMBOSIS PROPHYLAXIS
     Dosage: 75 MG, BID
     Route: 048
     Dates: start: 20041005, end: 20041107
  29. PERFALGAN [Concomitant]
     Active Substance: ACETAMINOPHEN
     Dosage: 1 G, UNK
     Route: 065
     Dates: start: 20041014, end: 20041014
  30. POLYSPECTRAN [Concomitant]
     Indication: PRODUCT USED FOR UNKNOWN INDICATION
     Dosage: 1 DF, TID
     Route: 065
     Dates: start: 20041108
  31. LANTUS [Suspect]
     Active Substance: INSULIN GLARGINE
     Indication: DIABETES MELLITUS
     Dosage: UNK
     Route: 058
     Dates: start: 20040729, end: 20041110
  32. MELPERONE HYDROCHLORIDE [Suspect]
     Active Substance: MELPERONE HYDROCHLORIDE
     Indication: SLEEP DISORDER
     Dosage: 1 ML, QD
     Route: 048
     Dates: start: 20041030, end: 20041031
  33. LORAZEPAM. [Suspect]
     Active Substance: LORAZEPAM
     Indication: SLEEP DISORDER
     Dosage: 1 DF, QD
     Route: 048
     Dates: start: 20041030, end: 20041030
  34. SORTIS [Suspect]
     Active Substance: ATORVASTATIN
     Indication: HYPERCHOLESTEROLAEMIA
     Dosage: 40 MG, QD
     Route: 048
     Dates: start: 20040729, end: 20041102
  35. RAMIPRIL. [Suspect]
     Active Substance: RAMIPRIL
     Dosage: 2.5 MG, QD
     Route: 048
     Dates: start: 20041007, end: 20041031
  36. LOPERAMIDE [Suspect]
     Active Substance: LOPERAMIDE
     Indication: DIARRHOEA
     Dosage: 2 DF, QD
     Route: 048
     Dates: start: 20041031, end: 20041031
  37. PERFALGAN [Concomitant]
     Active Substance: ACETAMINOPHEN
     Indication: PRODUCT USED FOR UNKNOWN INDICATION
     Dosage: UNK
     Route: 065
     Dates: start: 20041021, end: 20041021
  38. MORPHINE [Concomitant]
     Active Substance: MORPHINE
     Indication: PRODUCT USED FOR UNKNOWN INDICATION
     Dosage: 1 DF, BID
     Route: 065
     Dates: start: 20041106, end: 20041109
  39. DIFLUCAN [Concomitant]
     Active Substance: FLUCONAZOLE
     Indication: PRODUCT USED FOR UNKNOWN INDICATION
     Dosage: 1 DF, QD
     Route: 065
     Dates: start: 20041106, end: 20041110
  40. GLUCOSE 50  BAXTER [Suspect]
     Active Substance: DEXTROSE
     Dosage: UNK
     Route: 042
     Dates: start: 20041108, end: 20041108
  41. DIGITOXIN [Suspect]
     Active Substance: DIGITOXIN
     Indication: CARDIAC FAILURE
     Dosage: UNK
     Route: 048
     Dates: start: 20041103, end: 20041111
  42. DIGITOXIN [Suspect]
     Active Substance: DIGITOXIN
     Dosage: UNK
     Route: 048
     Dates: start: 20041014, end: 20041027
  43. POTASSIUM CHLORIDE. [Suspect]
     Active Substance: POTASSIUM CHLORIDE
     Indication: HYPOKALAEMIA
     Dosage: 40 MMOL, QD
     Route: 042
     Dates: start: 20041027, end: 20041027
  44. METOCLOPRAMIDE. [Suspect]
     Active Substance: METOCLOPRAMIDE
     Dosage: UNK
     Route: 048
     Dates: start: 20041024, end: 20041025
  45. METOCLOPRAMIDE. [Suspect]
     Active Substance: METOCLOPRAMIDE
     Dosage: UNK
     Route: 048
     Dates: start: 20041023, end: 20041023
  46. FUROSEMIDE. [Suspect]
     Active Substance: FUROSEMIDE
     Indication: POLYURIA
     Dosage: 40 MG, QD
     Route: 042
     Dates: start: 20041102, end: 20041111
  47. POTASSIUM CITRATE. [Suspect]
     Active Substance: POTASSIUM CITRATE
     Indication: HYPOKALAEMIA
     Dosage: 1 DF, QD
     Route: 048
     Dates: start: 20041015, end: 20041020
  48. CLEXANE [Suspect]
     Active Substance: ENOXAPARIN SODIUM
     Indication: THROMBOSIS
     Dosage: 40 ML, BID
     Route: 058
     Dates: start: 20041011, end: 20041028
  49. MELPERONE HYDROCHLORIDE [Suspect]
     Active Substance: MELPERONE HYDROCHLORIDE
     Dosage: 1 ML, QD
     Route: 048
     Dates: start: 20041102, end: 20041107
  50. FENISTIL [Concomitant]
     Active Substance: DIMETHINDENE
     Indication: PRODUCT USED FOR UNKNOWN INDICATION
     Dosage: 1 DF, TID
     Route: 065
     Dates: start: 20041104, end: 20041107
  51. METOPROLOL. [Suspect]
     Active Substance: METOPROLOL
     Indication: PRODUCT USED FOR UNKNOWN INDICATION
     Dosage: 200 MG, QD
     Route: 048
     Dates: start: 20041101, end: 20041107
  52. POTASSIUM CHLORIDE. [Suspect]
     Active Substance: POTASSIUM CHLORIDE
     Dosage: 40 MMOL, QD
     Route: 042
     Dates: start: 20041102, end: 20041104
  53. POTASSIUM CHLORIDE. [Suspect]
     Active Substance: POTASSIUM CHLORIDE
     Dosage: UNK
     Route: 065
     Dates: start: 20041101, end: 20041101
  54. METOCLOPRAMIDE. [Suspect]
     Active Substance: METOCLOPRAMIDE
     Indication: NAUSEA
     Dosage: UNK GTT, QD
     Route: 048
     Dates: start: 20041025, end: 20041028
  55. LORAZEPAM. [Suspect]
     Active Substance: LORAZEPAM
     Dosage: 1DF, QD
     Route: 048
     Dates: start: 20041014, end: 20041014
  56. TOREM [Suspect]
     Active Substance: TORSEMIDE
     Indication: RENAL FAILURE
     Dosage: UNK
     Route: 048
     Dates: start: 20041012, end: 20041031
  57. RAMIPRIL. [Suspect]
     Active Substance: RAMIPRIL
     Indication: ESSENTIAL HYPERTENSION
     Dosage: 5 DF, QD
     Route: 048
     Dates: start: 20041101, end: 20041102
  58. FENISTIL [Concomitant]
     Active Substance: DIMETHINDENE
     Dosage: 1 DF, UNK
     Route: 065
     Dates: start: 20041105, end: 20041105
  59. POTASSIUM CITRATE. [Suspect]
     Active Substance: POTASSIUM CITRATE
     Dosage: 1 DF, QD
     Route: 048
     Dates: start: 20041023, end: 20041025
  60. HUMALOG [Suspect]
     Active Substance: INSULIN LISPRO
     Indication: DIABETES MELLITUS
     Dosage: 1 DF, TID
     Route: 058
     Dates: start: 20040729, end: 20041110
  61. FERROUS SULFATE. [Suspect]
     Active Substance: FERROUS SULFATE
     Indication: MINERAL SUPPLEMENTATION
     Dosage: 1 DF, QD
     Route: 048
     Dates: start: 20041103, end: 20041107
  62. PANTOZOL [Suspect]
     Active Substance: PANTOPRAZOLE SODIUM
     Indication: GASTROINTESTINAL ULCER
     Dosage: 40 MG, QD
     Route: 048
     Dates: start: 20041007, end: 20041031
  63. SODIUM PERCHLORATE [Suspect]
     Active Substance: SODIUM PERCHLORATE
     Indication: HYPERTHYROIDISM
     Dosage: 20 GTT, TID
     Route: 048
     Dates: start: 20041006, end: 20041105
  64. FLUNITRAZEPAM [Concomitant]
     Active Substance: FLUNITRAZEPAM
     Indication: PRODUCT USED FOR UNKNOWN INDICATION
     Dosage: 1 MG, QD
     Route: 065
     Dates: start: 20041018, end: 20041018
  65. PREDNISOLONE SODIUM SUCCINATE [Concomitant]
     Active Substance: PREDNISOLONE SODIUM SUCCINATE
     Indication: PRODUCT USED FOR UNKNOWN INDICATION
     Dosage: UNK
     Route: 065
     Dates: start: 20041105, end: 20041110

REACTIONS (10)
  - Stevens-Johnson syndrome [Fatal]
  - Conjunctivitis [Fatal]
  - Lip erosion [Fatal]
  - Pruritus [Fatal]
  - Ocular hyperaemia [Fatal]
  - Nikolsky^s sign [Fatal]
  - Swollen tongue [Fatal]
  - Oral disorder [Fatal]
  - Blister [Fatal]
  - Purpura [Fatal]

NARRATIVE: CASE EVENT DATE: 20041104
